FAERS Safety Report 7772515-X (Version None)
Quarter: 2011Q3

REPORT INFORMATION
  Report Type: 
  Country: None (occurrence: None)
  Receive Date: 20110922
  Receipt Date: 20101208
  Transmission Date: 20111222
  Serious: No
  Sender: FDA-Public Use
  Company Number: US-ASTRAZENECA-2010SE58290

PATIENT
  Age: 33 Year
  Sex: Female

DRUGS (9)
  1. TRAZODONE HCL [Concomitant]
  2. SEROQUEL [Suspect]
     Route: 048
  3. DOCUSATE [Concomitant]
  4. SEROQUEL [Suspect]
     Indication: BIPOLAR I DISORDER
     Route: 048
     Dates: start: 20101101
  5. SEROQUEL [Suspect]
     Route: 048
  6. SEROQUEL [Suspect]
     Indication: ANXIETY
     Route: 048
     Dates: start: 20101101
  7. ZYRTEC [Concomitant]
  8. ANTABUSE [Concomitant]
  9. OMEPRAZOLE [Concomitant]

REACTIONS (7)
  - ACTIVITIES OF DAILY LIVING IMPAIRED [None]
  - LETHARGY [None]
  - SPEECH DISORDER [None]
  - LOSS OF CONSCIOUSNESS [None]
  - CONSTIPATION [None]
  - CONFUSIONAL STATE [None]
  - SWOLLEN TONGUE [None]
